FAERS Safety Report 5335295-3 (Version None)
Quarter: 2007Q2

REPORT INFORMATION
  Report Type: 
  Country: None (occurrence: None)
  Receive Date: 20070525
  Receipt Date: 20070516
  Transmission Date: 20071010
  Serious: Yes (Death, Hospitalization, Disabling)
  Sender: FDA-Public Use
  Company Number: GB-PFIZER INC-2007034675

PATIENT
  Sex: Male
  Weight: 72 kg

DRUGS (12)
  1. GENOTROPIN [Suspect]
     Indication: HYPOPITUITARISM
  2. LEVOTHYROXINE SODIUM [Concomitant]
     Route: 048
  3. RESTANDOL [Concomitant]
     Route: 048
  4. HYDROCORTISONE [Concomitant]
     Dosage: DAILY DOSE:30MG
     Route: 048
  5. RAMIPRIL [Concomitant]
     Route: 048
  6. ZOPICLONE [Concomitant]
     Route: 048
  7. SIMVASTATIN [Concomitant]
     Route: 048
  8. BISOPROLOL FUMARATE [Concomitant]
     Route: 048
  9. FRUSEMIDE [Concomitant]
     Route: 048
  10. ASPIRIN [Concomitant]
     Route: 048
  11. TESTOSTERONE [Concomitant]
     Route: 048
  12. CARBAMAZEPINE [Concomitant]
     Route: 048

REACTIONS (1)
  - ACUTE CORONARY SYNDROME [None]
